FAERS Safety Report 8864871 (Version 1)
Quarter: 2012Q4

REPORT INFORMATION
  Report Type: 
  Country: US (occurrence: US)
  Receive Date: 20121024
  Receipt Date: 20121024
  Transmission Date: 20130627
  Serious: No
  Sender: FDA-Public Use
  Company Number: US-AMGEN-USASP2011069725

PATIENT
  Age: 50 Year
  Sex: Female

DRUGS (10)
  1. ENBREL [Suspect]
     Indication: PRODUCT USED FOR UNKNOWN INDICATION
     Dosage: 50 mg, qwk
     Route: 058
  2. HUMULIN R [Concomitant]
     Dosage: UNK
  3. HUMULIN N [Concomitant]
     Dosage: UNK
  4. LASIX                              /00032601/ [Concomitant]
     Dosage: 20 mg, UNK
  5. METHOTREXATE [Concomitant]
     Dosage: 2.5 mg, UNK
  6. PREDNISONE [Concomitant]
     Dosage: 1 mg, UNK
  7. K-DUR [Concomitant]
     Dosage: 10 mEq, UNK
  8. GABAPENTIN [Concomitant]
     Dosage: 100 mg, UNK
  9. WELLBUTRIN [Concomitant]
     Dosage: 100 mg, UNK
  10. VITAMIN B COMPLEX [Concomitant]
     Dosage: UNK

REACTIONS (1)
  - Drug ineffective [Unknown]
